FAERS Safety Report 5948301-X (Version None)
Quarter: 2008Q4

REPORT INFORMATION
  Report Type: 
  Country: None (occurrence: None)
  Receive Date: 20081110
  Receipt Date: 20081110
  Transmission Date: 20090506
  Serious: No
  Sender: FDA-Public Use
  Company Number: None

PATIENT
  Age: 56 Year
  Sex: Male
  Weight: 108.8633 kg

DRUGS (2)
  1. LEVAQUIN [Suspect]
     Indication: BACTERIAL INFECTION
     Dosage: 750MG DAILY PO
     Route: 048
     Dates: start: 20081001, end: 20081101
  2. LEVAQUIN [Suspect]
     Indication: PROSTATITIS
     Dosage: 750MG DAILY PO
     Route: 048
     Dates: start: 20081001, end: 20081101

REACTIONS (7)
  - ARTHRALGIA [None]
  - DRUG PRESCRIBING ERROR [None]
  - INCORRECT DRUG DOSAGE FORM ADMINISTERED [None]
  - NEUROPATHY PERIPHERAL [None]
  - PAIN [None]
  - TENDON PAIN [None]
  - TENDONITIS [None]
